FAERS Safety Report 12564550 (Version 1)
Quarter: 2016Q3

REPORT INFORMATION
  Report Type: Spontaneous
  Country: US (occurrence: US)
  Receive Date: 20160718
  Receipt Date: 20160718
  Transmission Date: 20161109
  Serious: No
  Sender: FDA-Public Use
  Company Number: US-APOTEX-2016AP007667

PATIENT
  Sex: Female

DRUGS (1)
  1. MOMETASONE FUROATE NASAL SPRAY [Suspect]
     Active Substance: MOMETASONE FUROATE
     Indication: PRODUCT USED FOR UNKNOWN INDICATION
     Dosage: UNK
     Route: 045

REACTIONS (7)
  - Product substitution issue [Unknown]
  - Hypersensitivity [Unknown]
  - Device difficult to use [Unknown]
  - Drug ineffective [Unknown]
  - Eye pruritus [Unknown]
  - Device issue [Unknown]
  - Nasal discomfort [Unknown]
